FAERS Safety Report 19383669 (Version 2)
Quarter: 2021Q2

REPORT INFORMATION
  Report Type: Spontaneous
  Country: US (occurrence: US)
  Receive Date: 20210607
  Receipt Date: 20210607
  Transmission Date: 20210717
  Serious: No
  Sender: FDA-Public Use
  Company Number: US-GALDERMA-US2021009847

PATIENT
  Sex: Female

DRUGS (1)
  1. DIFFERIN GEL [Suspect]
     Active Substance: ADAPALENE
     Indication: PRODUCT USED FOR UNKNOWN INDICATION
     Dosage: 0.1%
     Route: 061
     Dates: start: 2021, end: 202104

REACTIONS (6)
  - Skin tightness [Unknown]
  - Dry skin [Unknown]
  - Panic attack [Unknown]
  - Skin exfoliation [Unknown]
  - Skin discolouration [Unknown]
  - Acne [Unknown]

NARRATIVE: CASE EVENT DATE: 2021
